FAERS Safety Report 5253252-2 (Version None)
Quarter: 2007Q1

REPORT INFORMATION
  Report Type: 
  Country: None (occurrence: None)
  Receive Date: 20070301
  Receipt Date: 20070221
  Transmission Date: 20070707
  Serious: Yes (Death)
  Sender: FDA-Public Use
  Company Number: US-JNJFOC-20070206273

PATIENT
  Sex: Male
  Weight: 2.27 kg

DRUGS (1)
  1. TYLENOL W/ CODEINE [Suspect]
     Indication: DRUG EXPOSURE DURING PREGNANCY

REACTIONS (2)
  - INTRA-UTERINE DEATH [None]
  - UMBILICAL CORD ABNORMALITY [None]
